FAERS Safety Report 7152465-2 (Version None)
Quarter: 2010Q4

REPORT INFORMATION
  Report Type: 
  Country: None (occurrence: None)
  Receive Date: 20101208
  Receipt Date: 20101208
  Transmission Date: 20110411
  Serious: Yes (Hospitalization)
  Sender: FDA-Public Use
  Company Number: None

PATIENT
  Sex: Male
  Weight: 84.8226 kg

DRUGS (1)
  1. TREANDA [Suspect]
     Indication: CHRONIC LYMPHOCYTIC LEUKAEMIA
     Dosage: 160MG/500CC NORMAL SALINE DAY1/DAY2 IV DRIP
     Route: 041
     Dates: start: 20101027, end: 20101027

REACTIONS (3)
  - ERYTHEMA [None]
  - OEDEMA [None]
  - PAIN [None]
